FAERS Safety Report 8524962-6 (Version None)
Quarter: 2012Q3

REPORT INFORMATION
  Report Type: 
  Country: None (occurrence: None)
  Receive Date: 20120710
  Receipt Date: 20120625
  Transmission Date: 20120928
  Serious: No
  Sender: FDA-Public Use
  Company Number: DSM-2012-00676

PATIENT
  Age: 74 Year
  Sex: Female
  Weight: 71 kg

DRUGS (1)
  1. OLMESARTAN MEDOXOMIL/AMLODIPINE BESYLATE/HYDROCHLOROTHIAZIDE [Suspect]
     Indication: HYPERTENSION
     Dosage: 1 IN 1 D, ORAL
     Route: 048
     Dates: start: 20110901, end: 20120601

REACTIONS (1)
  - DYSPNOEA [None]
